FAERS Safety Report 4344056-3 (Version None)
Quarter: 2004Q2

REPORT INFORMATION
  Report Type: 
  Country: None (occurrence: None)
  Receive Date: 20040419
  Receipt Date: 20040406
  Transmission Date: 20050107
  Serious: Yes (Hospitalization)
  Sender: FDA-Public Use
  Company Number: 2003159368JP

PATIENT
  Age: 74 Year
  Sex: Female
  Weight: 70 kg

DRUGS (11)
  1. BEXTRA [Suspect]
     Indication: RHEUMATOID ARTHRITIS
     Dosage: 10 MG, QD, ORAL
     Route: 048
     Dates: start: 20030423, end: 20030425
  2. IBUPROFEN [Suspect]
     Indication: RHEUMATOID ARTHRITIS
     Dosage: 600 MG, QD, ORAL
     Route: 048
     Dates: start: 20030416, end: 20030419
  3. LOXOPROFEN SODIUM (LOXOPROFEN SODIUM) [Suspect]
     Indication: RHEUMATOID ARTHRITIS
     Dosage: 180 MG, QD, ORAL
     Route: 048
     Dates: start: 20030402, end: 20030415
  4. PREDNISOLONE [Concomitant]
  5. FAMOTIDINE [Concomitant]
  6. TEPRENONE (TEPRENONE) [Concomitant]
  7. VERAPAMIL HCL [Concomitant]
  8. THEOPHYLLINE [Concomitant]
  9. VALACYCLOVIR HCL [Concomitant]
  10. MECOBALAMIN (MECOBALAMIN) [Concomitant]
  11. CEFACAPENE PIVOXIL HYDROCHLORIDE (CEFCAPENE PIVOXIL HYDROCHLORIDE) [Concomitant]

REACTIONS (3)
  - ASTHMA [None]
  - CONDITION AGGRAVATED [None]
  - HERPES ZOSTER [None]
